FAERS Safety Report 4532525-2 (Version None)
Quarter: 2004Q4

REPORT INFORMATION
  Report Type: 
  Country: None (occurrence: None)
  Receive Date: 20041206
  Receipt Date: 20041026
  Transmission Date: 20050328
  Serious: No
  Sender: FDA-Public Use
  Company Number: USA041082276

PATIENT
  Sex: Male

DRUGS (2)
  1. ALIMTA [Suspect]
     Dates: start: 20041005
  2. DEXAMETHASONE [Concomitant]

REACTIONS (1)
  - RASH [None]
